FAERS Safety Report 6864973-X (Version None)
Quarter: 2010Q3

REPORT INFORMATION
  Report Type: 
  Country: None (occurrence: None)
  Receive Date: 20100721
  Receipt Date: 20080408
  Transmission Date: 20110219
  Serious: No
  Sender: FDA-Public Use
  Company Number: US-PFIZER INC-2008031884

PATIENT
  Sex: Female

DRUGS (4)
  1. CHANTIX [Suspect]
     Indication: SMOKING CESSATION THERAPY
     Dates: start: 20080319
  2. LEXAPRO [Concomitant]
  3. ALPRAZOLAM [Concomitant]
  4. VAGIFEM [Concomitant]

REACTIONS (4)
  - ABNORMAL DREAMS [None]
  - HANGOVER [None]
  - NAUSEA [None]
  - SOMNOLENCE [None]
